FAERS Safety Report 4453205-8 (Version None)
Quarter: 2004Q3

REPORT INFORMATION
  Report Type: 
  Country: None (occurrence: None)
  Receive Date: 20040901
  Receipt Date: 20040601
  Transmission Date: 20050211
  Serious: Yes (Other)
  Sender: FDA-Public Use
  Company Number: 139047USA

PATIENT
  Age: 21 Year
  Sex: Female
  Weight: 59 kg

DRUGS (9)
  1. IFOSFAMIDE [Suspect]
     Indication: EWING'S SARCOMA
     Dates: start: 20040517, end: 20040521
  2. ETOPOSIDE [Concomitant]
  3. ADDERALL 20 [Concomitant]
  4. WELLBUTRIN [Concomitant]
  5. LEVAQUIN [Concomitant]
  6. LO/OVRAL [Concomitant]
  7. VALTREX [Concomitant]
  8. EFFEXOR [Concomitant]
  9. AUGMENTIN '125' [Concomitant]

REACTIONS (1)
  - CONVULSION [None]
